FAERS Safety Report 23660078 (Version 1)
Quarter: 2024Q1

REPORT INFORMATION
  Report Type: Spontaneous
  Country: KR (occurrence: None)
  Receive Date: 20240321
  Receipt Date: 20240321
  Transmission Date: 20240410
  Serious: Yes (Hospitalization, Other)
  Sender: FDA-Public Use
  Company Number: 2024A065030

PATIENT
  Age: 83 Year
  Sex: Male

DRUGS (4)
  1. ROSUVASTATIN [Suspect]
     Active Substance: ROSUVASTATIN
     Indication: Cardiovascular disorder
     Dosage: 10.0MG UNKNOWN
     Route: 048
  2. CLOPIDOGREL [Concomitant]
     Active Substance: CLOPIDOGREL BISULFATE
  3. TELMISARTAN [Concomitant]
     Active Substance: TELMISARTAN
  4. DILTIAZEM [Concomitant]
     Active Substance: DILTIAZEM

REACTIONS (7)
  - Metabolic acidosis [Unknown]
  - Rhabdomyolysis [Unknown]
  - Proteinuria [Unknown]
  - QRS axis abnormal [Unknown]
  - Lung opacity [Unknown]
  - Oliguria [Unknown]
  - Blood creatinine increased [Unknown]
